FAERS Safety Report 9717571 (Version 1)
Quarter: 2013Q4

REPORT INFORMATION
  Report Type: Spontaneous
  Country: US (occurrence: US)
  Receive Date: 20131127
  Receipt Date: 20131127
  Transmission Date: 20140711
  Serious: Yes (Hospitalization)
  Sender: FDA-Public Use
  Company Number: US-GILEAD-2009-0020816

PATIENT
  Sex: Female

DRUGS (13)
  1. LETAIRIS [Suspect]
     Indication: PULMONARY ARTERIAL HYPERTENSION
     Route: 048
  2. COUMADIN [Concomitant]
  3. DIOVAN [Concomitant]
  4. CARDIZEM [Concomitant]
  5. COREG [Concomitant]
  6. CRESTOR [Concomitant]
  7. BUMEX [Concomitant]
  8. PROVENTIL [Concomitant]
  9. POTASSIUM CHLORIDE [Concomitant]
  10. SYNTHROID [Concomitant]
  11. LEVEMIR [Concomitant]
  12. NOVOLOG [Concomitant]
  13. TRAMADOL [Concomitant]

REACTIONS (1)
  - Dyspnoea [Unknown]
